FAERS Safety Report 7631511-3 (Version None)
Quarter: 2011Q3

REPORT INFORMATION
  Report Type: 
  Country: None (occurrence: None)
  Receive Date: 20110725
  Receipt Date: 20110722
  Transmission Date: 20111222
  Serious: Yes (Other)
  Sender: FDA-Public Use
  Company Number: US-BRISTOL-MYERS SQUIBB COMPANY-15857980

PATIENT
  Age: 54 Year
  Sex: Female

DRUGS (2)
  1. ERBITUX [Suspect]
     Indication: METASTASES TO LYMPH NODES
     Dosage: 1 DF:ONE DOSE
     Dates: start: 20110614, end: 20110614
  2. ERBITUX [Suspect]
     Indication: LARYNGEAL CANCER
     Dosage: 1 DF:ONE DOSE
     Dates: start: 20110614, end: 20110614

REACTIONS (3)
  - VOMITING [None]
  - PYREXIA [None]
  - MIGRAINE [None]
